FAERS Safety Report 4659888-1 (Version None)
Quarter: 2005Q2

REPORT INFORMATION
  Report Type: 
  Country: None (occurrence: None)
  Receive Date: 20050502
  Receipt Date: 20040909
  Transmission Date: 20051028
  Serious: Yes (Hospitalization)
  Sender: FDA-Public Use
  Company Number: KDL090640

PATIENT
  Age: 75 Year
  Sex: Female

DRUGS (15)
  1. PROCRIT [Suspect]
     Indication: RENAL FAILURE CHRONIC
     Dosage: 60000 IU, 1 IN 1 WEEKS, SC
     Route: 058
     Dates: start: 20020101
  2. CLOPIDOGREL BISULFATE [Concomitant]
  3. FISH OIL [Concomitant]
  4. BECOSYM FORTE [Concomitant]
  5. IRON [Concomitant]
  6. PYRIDOXINE HYDROCHLORIDE [Concomitant]
  7. CYANOCOBALAMIN [Concomitant]
  8. VALSARTAN [Concomitant]
  9. VICODIN [Concomitant]
  10. NIFEDIPINE [Concomitant]
  11. FOLIC ACID [Concomitant]
  12. ATORVASTATIN CALCIUM [Concomitant]
  13. LEVOTHYROXINE SODIUM [Concomitant]
  14. FUROSEMIDE [Concomitant]
  15. SODIUM POLYSTYRENE SULFONATE [Concomitant]

REACTIONS (2)
  - HYPERTENSION [None]
  - THERAPEUTIC RESPONSE DECREASED [None]
